FAERS Safety Report 6342158-3 (Version None)
Quarter: 2009Q3

REPORT INFORMATION
  Report Type: 
  Country: None (occurrence: None)
  Receive Date: 20090904
  Receipt Date: 20090904
  Transmission Date: 20100115
  Serious: Yes (Hospitalization)
  Sender: FDA-Public Use
  Company Number: None

PATIENT
  Age: 81 Year
  Sex: Male
  Weight: 84 kg

DRUGS (1)
  1. TERAZOSIN HCL [Suspect]
     Indication: BENIGN PROSTATIC HYPERPLASIA
     Dosage: 1 MG AT BEDTIME PO
     Route: 048
     Dates: start: 20020429, end: 20090630

REACTIONS (5)
  - CARDIAC FAILURE [None]
  - COR PULMONALE [None]
  - HYPOTENSION [None]
  - HYPOVOLAEMIA [None]
  - RENAL IMPAIRMENT [None]
